FAERS Safety Report 6364086-X (Version None)
Quarter: 2009Q3

REPORT INFORMATION
  Report Type: 
  Country: None (occurrence: None)
  Receive Date: 20090919
  Receipt Date: 20090813
  Transmission Date: 20100115
  Serious: Yes (Other)
  Sender: FDA-Public Use
  Company Number: US-ABBOTT-09P-163-0582648-00

PATIENT
  Sex: Female
  Weight: 72.186 kg

DRUGS (2)
  1. HUMIRA [Suspect]
     Indication: PSORIASIS
     Route: 058
     Dates: start: 20080303, end: 20090601
  2. UNKNOWN TOPICAL CREAMS [Concomitant]
     Indication: PSORIASIS

REACTIONS (1)
  - LUNG NEOPLASM MALIGNANT [None]
